FAERS Safety Report 4809172-8 (Version None)
Quarter: 2005Q4

REPORT INFORMATION
  Report Type: 
  Country: None (occurrence: None)
  Receive Date: 20051025
  Receipt Date: 20051013
  Transmission Date: 20060501
  Serious: Yes (Hospitalization)
  Sender: FDA-Public Use
  Company Number: 2005UW15421

PATIENT
  Age: 40 Year
  Sex: Male

DRUGS (8)
  1. SEROQUEL [Suspect]
     Indication: SCHIZOPHRENIA
     Route: 048
     Dates: start: 20050825
  2. SEROQUEL [Suspect]
     Indication: POLYSUBSTANCE ABUSE
     Route: 048
     Dates: start: 20050825
  3. AMBIEN [Suspect]
     Route: 048
     Dates: start: 20050906, end: 20050906
  4. LITHIUM CARBONATE [Concomitant]
  5. FAMOTIDINE [Concomitant]
  6. INDERAL [Concomitant]
  7. ALBUTEROL [Concomitant]
     Dosage: 2 PUFFS Q 4 HRS PRN
     Route: 055
  8. FISH OIL [Concomitant]

REACTIONS (5)
  - HALLUCINATION, AUDITORY [None]
  - INSOMNIA [None]
  - LETHARGY [None]
  - OVERDOSE [None]
  - SUICIDAL IDEATION [None]
